FAERS Safety Report 7025569 (Version 3)
Quarter: 2020Q3

REPORT INFORMATION
  Report Type: Report from Study
  Country: US (occurrence: US)
  Receive Date: 20090617
  Receipt Date: 20090728
  Transmission Date: 20201104
  Serious: Yes (Death)
  Sender: FDA-Public Use
  Company Number: US-ROCHE-638266

PATIENT
  Age: 85 Year
  Sex: Female

DRUGS (3)
  1. ARICEPT [Concomitant]
     Active Substance: DONEPEZIL HYDROCHLORIDE
  2. IBANDRONIC ACID. [Suspect]
     Active Substance: IBANDRONIC ACID
     Indication: OSTEOPOROSIS
     Dosage: HAD TAKEN FOR 1?2 YEARS.
     Route: 048
     Dates: start: 20070613
  3. LIPITOR [Concomitant]
     Active Substance: ATORVASTATIN CALCIUM

REACTIONS (2)
  - Dementia Alzheimer^s type [Fatal]
  - Failure to thrive [None]

NARRATIVE: CASE EVENT DATE: 20090315
